FAERS Safety Report 5050653-2 (Version None)
Quarter: 2006Q2

REPORT INFORMATION
  Report Type: 
  Country: None (occurrence: None)
  Receive Date: 20060614
  Receipt Date: 20060303
  Transmission Date: 20061013
  Serious: Yes (Other)
  Sender: FDA-Public Use
  Company Number: 410945

PATIENT
  Age: 79 Year
  Sex: Female

DRUGS (4)
  1. BONIVA [Suspect]
     Indication: OSTEOPOROSIS
     Dosage: 1 PER MONTH ORAL
     Route: 048
  2. REGLAN [Suspect]
     Indication: DYSPEPSIA
  3. ZOCOR [Concomitant]
  4. SYNTHROID [Concomitant]

REACTIONS (7)
  - ALOPECIA [None]
  - DRY MOUTH [None]
  - DRY SKIN [None]
  - DRY THROAT [None]
  - DYSPEPSIA [None]
  - ENAMEL ANOMALY [None]
  - ONYCHOCLASIS [None]
